FAERS Safety Report 5913103-7 (Version None)
Quarter: 2008Q4

REPORT INFORMATION
  Report Type: 
  Country: None (occurrence: None)
  Receive Date: 20081008
  Receipt Date: 20081008
  Transmission Date: 20090506
  Serious: Yes (Other)
  Sender: FDA-Public Use
  Company Number: None

PATIENT
  Age: 65 Year
  Sex: Female
  Weight: 58.514 kg

DRUGS (8)
  1. FOSAMAX [Suspect]
     Indication: OSTEOPOROSIS
     Dosage: ? 1 TABLET WEEKLY (ORAL) 047
     Route: 048
     Dates: start: 20011019, end: 20061001
  2. ACTONEL [Suspect]
     Indication: OSTEOPOROSIS
     Dosage: 30MG WEEKLY (ORAL) 047
     Route: 048
     Dates: start: 20021001, end: 20060401
  3. LEVOTHYROXINE SODIUM [Concomitant]
  4. TOPROL-XL [Concomitant]
  5. HYDROCHLOROTHIAZIDE [Concomitant]
  6. ASPIRIN [Concomitant]
  7. OSCAL WITH VIT D [Concomitant]
  8. CENTRUM SILVER DAILY VITAMIN [Concomitant]

REACTIONS (4)
  - APICECTOMY [None]
  - FISTULA [None]
  - IMPAIRED HEALING [None]
  - SURGICAL PROCEDURE REPEATED [None]
